FAERS Safety Report 9252935 (Version 1)
Quarter: 2013Q1

REPORT INFORMATION
  Report Type: Spontaneous
  Country: US (occurrence: None)
  Receive Date: 20130305
  Receipt Date: 20130305
  Transmission Date: 20140127
  Serious: Yes (Other)
  Sender: FDA-Public Use
  Company Number: 163-201880-12090904

PATIENT
  Age: 73 Year
  Sex: Male

DRUGS (8)
  1. REVLIMID [Suspect]
     Indication: PLASMA CELL MYELOMA
     Dosage: 10 MG, 21 IN 28 D, PO
     Route: 048
     Dates: start: 20120123
  2. DEXAMETHASONE (DEXAMETHASONE) [Suspect]
  3. IRON [Suspect]
  4. VITAMINS [Suspect]
  5. PREVACID (LANSOPRAZOLE) [Suspect]
  6. VITAMIN B-12 [Suspect]
  7. VITAMIN C [Suspect]
  8. VITAMIN D (ERGOCALCIFEROL) [Suspect]

REACTIONS (2)
  - Tinea pedis [None]
  - Rash pruritic [None]
